FAERS Safety Report 13513727 (Version 1)
Quarter: 2017Q2

REPORT INFORMATION
  Report Type: Spontaneous
  Country: US (occurrence: US)
  Receive Date: 20170504
  Receipt Date: 20170504
  Transmission Date: 20170830
  Serious: Yes (Other)
  Sender: FDA-Public Use
  Company Number: US-ACCORD-051149

PATIENT
  Age: 13 Year
  Sex: Female
  Weight: 60 kg

DRUGS (3)
  1. TEMOZOLOMIDE. [Concomitant]
     Active Substance: TEMOZOLOMIDE
     Indication: GLIOBLASTOMA
     Dosage: ON DAYS 2-6 IN 28-DAY CYCLES FOR APPROX 12 CYCLES WITH DOSE REDUCTIONS
  2. CISPLATIN. [Suspect]
     Active Substance: CISPLATIN
     Indication: GLIOBLASTOMA
     Dosage: CYCLICAL?ON DAY 1, THE PATIENT RECEIVED A TOTAL OF SEVEN DOSES
  3. TEMOZOLOMIDE. [Concomitant]
     Active Substance: TEMOZOLOMIDE
     Indication: GLIOBLASTOMA
     Dosage: ON DAYS 2-6 IN 28-DAY CYCLES

REACTIONS (3)
  - Off label use [Unknown]
  - Deafness [Unknown]
  - Haematotoxicity [Unknown]
